FAERS Safety Report 6155471-X (Version None)
Quarter: 2009Q2

REPORT INFORMATION
  Report Type: 
  Country: None (occurrence: None)
  Receive Date: 20090415
  Receipt Date: 20090415
  Transmission Date: 20091009
  Serious: Yes (Hospitalization)
  Sender: FDA-Public Use
  Company Number: PHHO2004BE03336

PATIENT
  Sex: Female
  Weight: 64.9 kg

DRUGS (3)
  1. CGS 20267 T30748+ [Suspect]
     Indication: BREAST CANCER
     Dosage: 2.5 MG, QD
     Route: 048
     Dates: end: 20040303
  2. TAMOXIFEN CITRATE [Suspect]
     Dosage: 20 MG, QD-2 YEARS
     Dates: start: 20010301
  3. EFFEXOR [Concomitant]
     Indication: HOT FLUSH
     Dates: end: 20040303

REACTIONS (19)
  - CARDIOGENIC SHOCK [None]
  - COAGULOPATHY [None]
  - CONFUSIONAL STATE [None]
  - CORONARY ANGIOPLASTY [None]
  - CORONARY ARTERY EMBOLISM [None]
  - CORONARY ARTERY OCCLUSION [None]
  - CORONARY ARTERY THROMBOSIS [None]
  - DIZZINESS [None]
  - HAEMOGLOBIN DECREASED [None]
  - HAEMOPTYSIS [None]
  - HYPOTENSION [None]
  - MYOCARDIAL INFARCTION [None]
  - OXYGEN SATURATION DECREASED [None]
  - PULMONARY HAEMORRHAGE [None]
  - PULMONARY HYPERTENSION [None]
  - PULMONARY OEDEMA [None]
  - SEPSIS [None]
  - SINUS TACHYCARDIA [None]
  - TRACHEAL ULCER [None]
